FAERS Safety Report 13243324 (Version 4)
Quarter: 2017Q4

REPORT INFORMATION
  Report Type: Spontaneous
  Country: CA (occurrence: CA)
  Receive Date: 20170216
  Receipt Date: 20171205
  Transmission Date: 20180320
  Serious: Yes (Hospitalization)
  Sender: FDA-Public Use
  Company Number: ALCN2017CA001343

PATIENT
  Age: 52 Year
  Sex: Male

DRUGS (12)
  1. AMLODIPINE [Suspect]
     Active Substance: AMLODIPINE BESYLATE
     Indication: HYPERTENSION
     Dosage: 10 MG, QD
     Route: 048
  2. VIGAMOX [Suspect]
     Active Substance: MOXIFLOXACIN HYDROCHLORIDE
     Indication: PRODUCT USED FOR UNKNOWN INDICATION
     Dosage: UNK UNK, TID
     Route: 047
  3. PREDNISOLONE ^RATIOPHARM^ [Suspect]
     Active Substance: PREDNISOLONE
     Dosage: UNK UNK, BID
     Route: 065
  4. BESIVANCE [Suspect]
     Active Substance: BESIFLOXACIN
     Indication: PRODUCT USED FOR UNKNOWN INDICATION
     Dosage: UNK UNK, TID
     Route: 047
  5. CIALIS [Suspect]
     Active Substance: TADALAFIL
     Indication: PRODUCT USED FOR UNKNOWN INDICATION
     Route: 065
  6. OLOPATADINE. [Suspect]
     Active Substance: OLOPATADINE
     Indication: PRODUCT USED FOR UNKNOWN INDICATION
     Route: 047
  7. PREDNISOLONE ^RATIOPHARM^ [Suspect]
     Active Substance: PREDNISOLONE
     Indication: PRODUCT USED FOR UNKNOWN INDICATION
     Dosage: UNK UNK, QID
     Route: 065
  8. PREDNISOLONE ^RATIOPHARM^ [Suspect]
     Active Substance: PREDNISOLONE
     Dosage: UNK UNK, TID
     Route: 065
  9. BETOPTIC [Suspect]
     Active Substance: BETAXOLOL HYDROCHLORIDE
     Indication: PRODUCT USED FOR UNKNOWN INDICATION
     Dosage: UNK UNK, QD
     Route: 047
  10. EPIPEN JR [Suspect]
     Active Substance: EPINEPHRINE
     Indication: DRUG HYPERSENSITIVITY
     Dosage: UNK
     Route: 030
  11. NASONEX [Suspect]
     Active Substance: MOMETASONE FUROATE
     Indication: PRODUCT USED FOR UNKNOWN INDICATION
     Dosage: 2 DF, QD
     Route: 006
  12. PREDNISONE. [Suspect]
     Active Substance: PREDNISONE
     Indication: PRODUCT USED FOR UNKNOWN INDICATION
     Dosage: 50 MG, TID
     Route: 065

REACTIONS (1)
  - Hypersensitivity [Recovered/Resolved]
